FAERS Safety Report 9177980 (Version 1)
Quarter: 2013Q1

REPORT INFORMATION
  Report Type: Spontaneous
  Country: US (occurrence: US)
  Receive Date: 20130321
  Receipt Date: 20130321
  Transmission Date: 20140127
  Serious: No
  Sender: FDA-Public Use
  Company Number: US-BAYER-2013-035653

PATIENT
  Age: 63 Year
  Sex: Female
  Weight: 156 kg

DRUGS (2)
  1. ALEVE [Suspect]
     Indication: ARTHRITIS
     Dosage: 1 DF, QD
     Route: 048
     Dates: start: 2010
  2. UNSPECIFIED INGREDIENT [Concomitant]

REACTIONS (1)
  - Incorrect drug administration duration [None]
